FAERS Safety Report 10676532 (Version 1)
Quarter: 2014Q4

REPORT INFORMATION
  Report Type: Spontaneous
  Country: US (occurrence: None)
  Receive Date: 20141223
  Receipt Date: 20141223
  Transmission Date: 20150529
  Serious: Yes (Other)
  Sender: FDA-Public Use
  Company Number: None

PATIENT
  Age: 65 Year
  Sex: Female
  Weight: 92.53 kg

DRUGS (9)
  1. CHOLECALCIFEROL [Concomitant]
     Active Substance: CHOLECALCIFEROL
  2. CLONAZEPAM. [Concomitant]
     Active Substance: CLONAZEPAM
  3. QUETIAPINE [Concomitant]
     Active Substance: QUETIAPINE
     Dosage: 20 MG, 1X4 DAILY,ORAL
     Dates: start: 20121209, end: 20121212
  4. DICYCLOMINE [Suspect]
     Active Substance: DICYCLOMINE HYDROCHLORIDE
     Indication: IRRITABLE BOWEL SYNDROME
     Dosage: 20MG 1 PILL 4X DAILY 1 X 4 DAILY ORAL
     Route: 048
     Dates: start: 20121209, end: 20141222
  5. HYDROCHLOROTHIAZIDE AND LISINOPRIL [Concomitant]
     Active Substance: HYDROCHLOROTHIAZIDE\LISINOPRIL
  6. COCONUT OIL [Concomitant]
     Active Substance: COCONUT OIL
  7. DICYCLOMINE [Suspect]
     Active Substance: DICYCLOMINE HYDROCHLORIDE
     Indication: ABDOMINAL PAIN UPPER
     Dosage: 20MG 1 PILL 4X DAILY 1 X 4 DAILY ORAL
     Route: 048
     Dates: start: 20121209, end: 20141222
  8. LEVOTHYROXINE [Concomitant]
     Active Substance: LEVOTHYROXINE
  9. HYDROXYZINE [Concomitant]
     Active Substance: HYDROXYZINE\HYDROXYZINE HYDROCHLORIDE

REACTIONS (2)
  - Memory impairment [None]
  - Fear [None]

NARRATIVE: CASE EVENT DATE: 201411
